FAERS Safety Report 9808258 (Version 2)
Quarter: 2014Q1

REPORT INFORMATION
  Report Type: Spontaneous
  Country: US (occurrence: None)
  Receive Date: 20140108
  Receipt Date: 20140123
  Transmission Date: 20141002
  Serious: Yes (Death, Hospitalization)
  Sender: FDA-Public Use
  Company Number: 2014AP000055

PATIENT
  Age: 80 Year
  Sex: Male
  Weight: 80 kg

DRUGS (1)
  1. FERRIPROX [Suspect]
     Indication: HAEMOCHROMATOSIS
     Route: 048
     Dates: start: 20130829, end: 20131203

REACTIONS (6)
  - Death [None]
  - Prostate cancer [None]
  - Lymphoma [None]
  - Myelodysplastic syndrome [None]
  - Cardiac failure congestive [None]
  - Pneumonia [None]
